FAERS Safety Report 12709096 (Version 1)
Quarter: 2016Q3

REPORT INFORMATION
  Report Type: Spontaneous
  Country: US (occurrence: US)
  Receive Date: 20160901
  Receipt Date: 20160901
  Transmission Date: 20161109
  Serious: No
  Sender: FDA-Public Use
  Company Number: US-JAZZ-2016-US-008528

PATIENT
  Sex: Male
  Weight: 89.8 kg

DRUGS (34)
  1. VALTREX [Concomitant]
     Active Substance: VALACYCLOVIR HYDROCHLORIDE
  2. XYREM [Suspect]
     Active Substance: SODIUM OXYBATE
     Dosage: 5 G, SECOND DOSE
     Route: 048
     Dates: start: 200804, end: 2008
  3. XYREM [Suspect]
     Active Substance: SODIUM OXYBATE
     Dosage: 9 G, FIRST DOSE
     Route: 048
     Dates: start: 200811, end: 2010
  4. DENAVIR [Concomitant]
     Active Substance: PENCICLOVIR
  5. IBUPROFEN. [Concomitant]
     Active Substance: IBUPROFEN
  6. PERCOCET [Concomitant]
     Active Substance: ACETAMINOPHEN\OXYCODONE HYDROCHLORIDE
  7. XYREM [Suspect]
     Active Substance: SODIUM OXYBATE
     Dosage: DOSE ADJUSTMENTS
     Route: 048
  8. AXIRON [Concomitant]
     Active Substance: TESTOSTERONE
  9. CURCUMIN [Concomitant]
     Active Substance: CURCUMIN
  10. MARINOL [Concomitant]
     Active Substance: DRONABINOL
  11. XYREM [Suspect]
     Active Substance: SODIUM OXYBATE
     Indication: FIBROMYALGIA
     Dosage: DOSE ADJUSTMENTS
     Route: 048
  12. XYREM [Suspect]
     Active Substance: SODIUM OXYBATE
     Dosage: 9 G, FIRST DOSE
     Route: 048
     Dates: start: 200804, end: 2008
  13. CORTEF [Concomitant]
     Active Substance: HYDROCORTISONE
  14. FLOMAX [Concomitant]
     Active Substance: TAMSULOSIN HYDROCHLORIDE
  15. METHADONE HCL [Concomitant]
     Active Substance: METHADONE HYDROCHLORIDE
  16. PRILOSEC [Concomitant]
     Active Substance: OMEPRAZOLE MAGNESIUM
  17. ZESTRIL [Concomitant]
     Active Substance: LISINOPRIL
  18. CLINDAMYCIN PHOSPHATE. [Concomitant]
     Active Substance: CLINDAMYCIN PHOSPHATE
  19. CLONIDINE HCL [Concomitant]
     Active Substance: CLONIDINE HYDROCHLORIDE
  20. XYREM [Suspect]
     Active Substance: SODIUM OXYBATE
     Dosage: 4.5 G, BID
     Route: 048
     Dates: start: 201108
  21. DIFLUCAN [Concomitant]
     Active Substance: FLUCONAZOLE
  22. EPIPEN [Concomitant]
     Active Substance: EPINEPHRINE
  23. PROBIOTICA [Concomitant]
     Active Substance: PROBIOTICS NOS
  24. XYREM [Suspect]
     Active Substance: SODIUM OXYBATE
     Indication: SLEEP DISORDER
     Dosage: 2.25 G, BID
     Route: 048
     Dates: start: 200310, end: 200311
  25. CLARITIN [Concomitant]
     Active Substance: LORATADINE
  26. GLUTATHIONE-L [Concomitant]
  27. XYREM [Suspect]
     Active Substance: SODIUM OXYBATE
     Dosage: 5 G, SECOND DOSE
     Route: 048
     Dates: start: 200811, end: 2010
  28. CARDIZEM [Concomitant]
     Active Substance: DILTIAZEM HYDROCHLORIDE
  29. CLOTRIMAZOLE. [Concomitant]
     Active Substance: CLOTRIMAZOLE
  30. FLONASE [Concomitant]
     Active Substance: FLUTICASONE PROPIONATE
  31. PROVENTIL HFA [Concomitant]
     Active Substance: ALBUTEROL SULFATE
  32. SORBITOL. [Concomitant]
     Active Substance: SORBITOL
  33. VITAMIN B12 [Concomitant]
     Active Substance: CYANOCOBALAMIN
  34. VITAMIN C TR [Concomitant]

REACTIONS (8)
  - Pain [Not Recovered/Not Resolved]
  - Tinnitus [Not Recovered/Not Resolved]
  - Arthropod bite [Unknown]
  - Malaise [Not Recovered/Not Resolved]
  - Insomnia [Not Recovered/Not Resolved]
  - Ill-defined disorder [Not Recovered/Not Resolved]
  - Rotator cuff syndrome [Not Recovered/Not Resolved]
  - Musculoskeletal pain [Unknown]

NARRATIVE: CASE EVENT DATE: 2016
